FAERS Safety Report 5120990-1 (Version None)
Quarter: 2006Q4

REPORT INFORMATION
  Report Type: 
  Country: None (occurrence: None)
  Receive Date: 20061005
  Receipt Date: 20060922
  Transmission Date: 20070319
  Serious: Yes (Other)
  Sender: FDA-Public Use
  Company Number: PHEH2006US12110

PATIENT
  Sex: Female

DRUGS (5)
  1. TRILEPTAL [Suspect]
     Indication: BIPOLAR DISORDER
     Dates: start: 20020101
  2. TRILEPTAL [Suspect]
     Dosage: 450 MG, QD
  3. LITHIUM [Concomitant]
     Indication: BIPOLAR DISORDER
     Dates: start: 20020101
  4. TOPAMAX [Concomitant]
     Indication: BIPOLAR DISORDER
     Dates: start: 20020101
  5. LAMICTAL [Concomitant]
     Indication: BIPOLAR DISORDER
     Dates: start: 20020101

REACTIONS (6)
  - DEPRESSION [None]
  - DIZZINESS [None]
  - MUSCLE SPASMS [None]
  - MUSCULAR WEAKNESS [None]
  - SPEECH DISORDER [None]
  - TREMOR [None]
